FAERS Safety Report 18887130 (Version 1)
Quarter: 2021Q1

REPORT INFORMATION
  Report Type: Report from Study
  Country: CA (occurrence: CA)
  Receive Date: 20210212
  Receipt Date: 20210212
  Transmission Date: 20210420
  Serious: Yes (Death, Hospitalization, Other)
  Sender: FDA-Public Use
  Company Number: CA-SHIRE-CA201914444AA

PATIENT
  Age: 53 Year
  Sex: Male

DRUGS (2)
  1. HIZENTRA [Concomitant]
     Active Substance: HUMAN IMMUNOGLOBULIN G
     Indication: PRODUCT USED FOR UNKNOWN INDICATION
  2. GAMMAGARD LIQUID [Suspect]
     Active Substance: HUMAN IMMUNOGLOBULIN G
     Indication: SECONDARY IMMUNODEFICIENCY
     Dosage: 16 GRAM, 1X/WEEK
     Route: 058
     Dates: start: 20180830, end: 20201221

REACTIONS (5)
  - Pneumonia [Unknown]
  - Staphylococcal infection [Unknown]
  - Septic shock [Unknown]
  - Death [Fatal]
  - H1N1 influenza [Unknown]

NARRATIVE: CASE EVENT DATE: 20201221
